FAERS Safety Report 20035239 (Version 3)
Quarter: 2022Q1

REPORT INFORMATION
  Report Type: Spontaneous
  Country: GB (occurrence: GB)
  Receive Date: 20211104
  Receipt Date: 20220113
  Transmission Date: 20220423
  Serious: Yes (Life-Threatening, Hospitalization, Disabling, Other)
  Sender: FDA-Public Use
  Company Number: GB-NOVARTISPH-NVSC2019GB104560

PATIENT
  Age: 31 Year
  Sex: Female
  Weight: 63.5 kg

DRUGS (65)
  1. CODEINE PHOSPHATE [Interacting]
     Active Substance: CODEINE PHOSPHATE
     Indication: Analgesic therapy
     Dosage: 30 MG (15-30 MG)
     Route: 048
     Dates: start: 2002, end: 2008
  2. CODEINE PHOSPHATE [Interacting]
     Active Substance: CODEINE PHOSPHATE
     Indication: Serotonin syndrome
     Dosage: UNK UNK, QD
     Route: 048
     Dates: start: 20110224, end: 20110410
  3. CODEINE PHOSPHATE [Interacting]
     Active Substance: CODEINE PHOSPHATE
     Dosage: 1 *OT, Q24H
     Route: 048
     Dates: start: 20110615, end: 20110723
  4. CODEINE PHOSPHATE [Interacting]
     Active Substance: CODEINE PHOSPHATE
     Dosage: UNK
     Route: 048
     Dates: start: 2008, end: 2008
  5. MIRTAZAPINE [Interacting]
     Active Substance: MIRTAZAPINE
     Indication: Depression
     Dosage: 30 MG, QD (30 MG IN THE DAY AND 15 MG AT NIGHT, TABLET)
     Route: 048
     Dates: start: 20100923, end: 20101108
  6. MIRTAZAPINE [Interacting]
     Active Substance: MIRTAZAPINE
     Indication: Psychotic disorder
     Dosage: 30 MG, ONCE PER DAY
     Route: 048
     Dates: start: 20101007, end: 20101012
  7. MIRTAZAPINE [Interacting]
     Active Substance: MIRTAZAPINE
     Dosage: 30 MG
     Route: 048
     Dates: start: 20110224, end: 20110506
  8. MIRTAZAPINE [Interacting]
     Active Substance: MIRTAZAPINE
     Dosage: 15 MG, 2 TIMES PER DAY
     Route: 065
     Dates: start: 20100923, end: 20101108
  9. QUETIAPINE [Interacting]
     Active Substance: QUETIAPINE
     Indication: Psychotic disorder
     Dosage: UNK
     Route: 048
     Dates: start: 19990801
  10. QUETIAPINE [Interacting]
     Active Substance: QUETIAPINE
     Dosage: 300 MG
     Route: 048
     Dates: start: 20110224, end: 20110706
  11. QUETIAPINE [Interacting]
     Active Substance: QUETIAPINE
     Dosage: UNK
     Route: 065
     Dates: start: 19990801, end: 20110706
  12. TRAMADOL [Interacting]
     Active Substance: TRAMADOL
     Indication: Analgesic therapy
     Dosage: 5 MG
     Route: 044
     Dates: start: 1995, end: 1996
  13. TRAMADOL [Interacting]
     Active Substance: TRAMADOL
     Indication: Neck pain
     Dosage: 4 OT, QD
     Route: 048
     Dates: start: 20080722
  14. TRAMADOL [Interacting]
     Active Substance: TRAMADOL
     Indication: Back pain
     Dosage: 4 MG, ONCE PER DAY( (50-100 MG QD)
     Route: 048
     Dates: start: 20081201, end: 20101210
  15. TRAMADOL [Interacting]
     Active Substance: TRAMADOL
     Dosage: 20 MG
     Route: 065
     Dates: start: 20110725
  16. TRAMADOL [Interacting]
     Active Substance: TRAMADOL
     Dosage: UNK
     Route: 065
  17. TRAMADOL [Interacting]
     Active Substance: TRAMADOL
     Dosage: UNK
     Route: 048
     Dates: start: 20081201, end: 20101210
  18. TRAMADOL [Interacting]
     Active Substance: TRAMADOL
     Dosage: 8 MG
     Route: 065
     Dates: start: 20110725
  19. TRAMADOL [Interacting]
     Active Substance: TRAMADOL
     Dosage: UNK, UNK (4 UNK, QD)
     Route: 048
     Dates: start: 20080722
  20. TRAMADOL [Interacting]
     Active Substance: TRAMADOL
     Dosage: UNK
     Route: 065
     Dates: start: 2008, end: 2009
  21. TRAMADOL [Interacting]
     Active Substance: TRAMADOL
     Dosage: 1 DOSAGE FORM, UNK
     Route: 065
     Dates: start: 20110725
  22. TRAMADOL [Interacting]
     Active Substance: TRAMADOL
     Dosage: 4 DOSAGE FORM, UNK
     Route: 048
  23. PAROXETINE HYDROCHLORIDE [Interacting]
     Active Substance: PAROXETINE HYDROCHLORIDE
     Indication: Post-traumatic stress disorder
     Dosage: 60 MG
     Route: 048
     Dates: start: 1997, end: 201105
  24. PAROXETINE HYDROCHLORIDE [Interacting]
     Active Substance: PAROXETINE HYDROCHLORIDE
     Indication: Depression
     Dosage: 60 MG, QD
     Route: 048
     Dates: start: 1999, end: 201105
  25. PAROXETINE HYDROCHLORIDE [Interacting]
     Active Substance: PAROXETINE HYDROCHLORIDE
     Dosage: UNK
     Route: 048
     Dates: start: 1999
  26. PAROXETINE HYDROCHLORIDE [Interacting]
     Active Substance: PAROXETINE HYDROCHLORIDE
     Dosage: 60 MG, QD(20MG THREE TIMES PER DAY)
     Route: 048
     Dates: start: 19990801, end: 201105
  27. PAROXETINE HYDROCHLORIDE [Interacting]
     Active Substance: PAROXETINE HYDROCHLORIDE
     Dosage: 40 MG, QD
     Route: 048
     Dates: start: 19990801, end: 20110706
  28. PAROXETINE HYDROCHLORIDE [Interacting]
     Active Substance: PAROXETINE HYDROCHLORIDE
     Dosage: UNK
     Route: 048
     Dates: start: 201012
  29. PAROXETINE HYDROCHLORIDE [Interacting]
     Active Substance: PAROXETINE HYDROCHLORIDE
     Dosage: 40 MG, QD
     Route: 048
     Dates: start: 201105, end: 20110706
  30. PAROXETINE HYDROCHLORIDE [Interacting]
     Active Substance: PAROXETINE HYDROCHLORIDE
     Dosage: 20 MG, 3 TIMES PER DAY
     Route: 048
     Dates: start: 1997, end: 201105
  31. LORAZEPAM [Interacting]
     Active Substance: LORAZEPAM
     Indication: Sedation
     Dosage: 1 MG, 4 TIMES PER DAY
     Route: 048
     Dates: start: 20110224, end: 20110410
  32. LORAZEPAM [Interacting]
     Active Substance: LORAZEPAM
     Dosage: 4 MG, QD
     Route: 048
     Dates: start: 20110523, end: 20110627
  33. LORAZEPAM [Interacting]
     Active Substance: LORAZEPAM
     Dosage: 16 MG, QD (4 MG QID)
     Route: 048
     Dates: start: 20110224, end: 20110410
  34. LORAZEPAM [Interacting]
     Active Substance: LORAZEPAM
     Dosage: 1 MG
     Route: 065
     Dates: start: 20110725
  35. LORAZEPAM [Interacting]
     Active Substance: LORAZEPAM
     Dosage: 1 MG, UNK
     Route: 048
     Dates: start: 20110523, end: 20110627
  36. OMEPRAZOLE [Interacting]
     Active Substance: OMEPRAZOLE
     Indication: Dyspepsia
     Dosage: 20 MG, ONCE PER DAY (Q24H)
     Route: 048
     Dates: start: 20110525
  37. OMEPRAZOLE [Interacting]
     Active Substance: OMEPRAZOLE
     Dosage: 20 MG, QD
     Route: 048
  38. DIAZEPAM [Interacting]
     Active Substance: DIAZEPAM
     Indication: Muscle spasms
     Dosage: 20 MG, QID
     Route: 065
     Dates: start: 20110725, end: 20110725
  39. DIAZEPAM [Interacting]
     Active Substance: DIAZEPAM
     Indication: Serotonin syndrome
     Dosage: 8 MG, Q24H
     Route: 065
     Dates: start: 20110725
  40. DIAZEPAM [Interacting]
     Active Substance: DIAZEPAM
     Dosage: 5 MG, 4 TIMES PER DAY (20 MG, QD 5 MILLIGRAM, QID (5
     Route: 065
     Dates: start: 20110725
  41. DIAZEPAM [Interacting]
     Active Substance: DIAZEPAM
     Dosage: UNK
     Route: 065
  42. DIAZEPAM [Interacting]
     Active Substance: DIAZEPAM
     Dosage: 5 MG, 4 TIMES PER DAY (20 MG, QD 5 MILLIGRAM, QID (5
     Route: 065
     Dates: start: 20110725
  43. CLONAZEPAM [Interacting]
     Active Substance: CLONAZEPAM
     Indication: Sedation
     Dosage: UNSURE
     Route: 048
     Dates: start: 20110224, end: 20110410
  44. PAROXETINE HYDROCHLORIDE [Interacting]
     Active Substance: PAROXETINE HYDROCHLORIDE
     Indication: Depression
     Dosage: 60 MG, ONCE PER DAY (20 MG, THREE TIMES PER DAY)
     Route: 048
     Dates: start: 19990801, end: 201105
  45. PAROXETINE HYDROCHLORIDE [Interacting]
     Active Substance: PAROXETINE HYDROCHLORIDE
     Dosage: 40 MG, QD
     Route: 048
     Dates: start: 201105, end: 20110706
  46. PAROXETINE HYDROCHLORIDE [Interacting]
     Active Substance: PAROXETINE HYDROCHLORIDE
     Dosage: 20 MG, 3 TIMES PER DAY (NTERRUPTED)
     Route: 065
     Dates: start: 1997, end: 201105
  47. PAROXETINE HYDROCHLORIDE [Interacting]
     Active Substance: PAROXETINE HYDROCHLORIDE
     Dosage: UNK
     Route: 048
     Dates: start: 200812, end: 20101210
  48. PAROXETINE HYDROCHLORIDE [Interacting]
     Active Substance: PAROXETINE HYDROCHLORIDE
     Dosage: 40 MG, QD (20 MG (2 PER DAY)
     Route: 048
     Dates: start: 201105, end: 20110706
  49. PAROXETINE HYDROCHLORIDE [Interacting]
     Active Substance: PAROXETINE HYDROCHLORIDE
     Dosage: 40 MG, ONCE PER DAY
     Route: 048
  50. PAROXETINE HYDROCHLORIDE [Interacting]
     Active Substance: PAROXETINE HYDROCHLORIDE
     Dosage: UNK
     Route: 048
     Dates: start: 1999
  51. PAROXETINE HYDROCHLORIDE [Interacting]
     Active Substance: PAROXETINE HYDROCHLORIDE
     Dosage: UNK
     Route: 048
     Dates: start: 201012
  52. AMITRIPTYLINE HYDROCHLORIDE [Interacting]
     Active Substance: AMITRIPTYLINE HYDROCHLORIDE
     Indication: Neuralgia
     Dosage: UNK
     Route: 065
  53. AMITRIPTYLINE HYDROCHLORIDE [Interacting]
     Active Substance: AMITRIPTYLINE HYDROCHLORIDE
     Indication: Serotonin syndrome
     Dosage: 25 MG, ONCE PER DAY (25 MG AT NIGHT)
     Route: 065
     Dates: start: 20110810
  54. AMITRIPTYLINE HYDROCHLORIDE [Interacting]
     Active Substance: AMITRIPTYLINE HYDROCHLORIDE
     Indication: Muscle spasms
     Dosage: UNK, QD (NIGHT)
     Route: 065
  55. AMITRIPTYLINE HYDROCHLORIDE [Interacting]
     Active Substance: AMITRIPTYLINE HYDROCHLORIDE
     Indication: Drug withdrawal syndrome
     Dosage: UNK
     Route: 065
  56. DOMPERIDONE [Interacting]
     Active Substance: DOMPERIDONE
     Indication: Product used for unknown indication
     Dosage: UNK
     Route: 048
     Dates: start: 20100923, end: 20101108
  57. DOMPERIDONE [Interacting]
     Active Substance: DOMPERIDONE
     Dosage: UNK
     Route: 048
  58. DOMPERIDONE [Interacting]
     Active Substance: DOMPERIDONE
     Dosage: UNK
     Route: 065
  59. PROCYCLIDINE [Interacting]
     Active Substance: PROCYCLIDINE
     Indication: Oculogyric crisis
     Dosage: 5 MG, QD
     Route: 048
     Dates: start: 1995, end: 1996
  60. PROCYCLIDINE [Interacting]
     Active Substance: PROCYCLIDINE
     Indication: Extrapyramidal disorder
     Dosage: 20 MG, QD
     Route: 048
     Dates: start: 20110324, end: 20110506
  61. PROCYCLIDINE [Interacting]
     Active Substance: PROCYCLIDINE
     Indication: Extrapyramidal disorder
     Dosage: 15 MG, ONCE PER DAY (15 MG, QD, 5MG, TID)
     Route: 048
     Dates: start: 20110503, end: 20110510
  62. PROCYCLIDINE [Interacting]
     Active Substance: PROCYCLIDINE
     Dosage: 5 MG, QD
     Route: 048
     Dates: start: 20110503, end: 20110510
  63. PROCYCLIDINE [Interacting]
     Active Substance: PROCYCLIDINE
     Dosage: 20 MG, QD
     Route: 065
     Dates: start: 20110415
  64. PROCYCLIDINE [Interacting]
     Active Substance: PROCYCLIDINE
     Dosage: UNK
     Route: 065
     Dates: start: 20110415
  65. PHOSPHORUS [Suspect]
     Active Substance: PHOSPHORUS
     Indication: Product used for unknown indication
     Dosage: UNK
     Route: 065

REACTIONS (96)
  - Muscle rigidity [Unknown]
  - Contusion [Unknown]
  - Premature labour [Unknown]
  - Paralysis [Unknown]
  - Mydriasis [Unknown]
  - Disorientation [Not Recovered/Not Resolved]
  - Musculoskeletal stiffness [Not Recovered/Not Resolved]
  - Muscle disorder [Unknown]
  - Serotonin syndrome [Not Recovered/Not Resolved]
  - Drug interaction [Unknown]
  - Pallor [Unknown]
  - Skin discolouration [Not Recovered/Not Resolved]
  - Dystonia [Unknown]
  - Muscle spasms [Not Recovered/Not Resolved]
  - Hypoaesthesia oral [Not Recovered/Not Resolved]
  - Swollen tongue [Unknown]
  - Speech disorder [Unknown]
  - Muscle spasms [Unknown]
  - Drug withdrawal syndrome [Unknown]
  - Neuroleptic malignant syndrome [Unknown]
  - Paraesthesia [Unknown]
  - Feeling of body temperature change [Unknown]
  - Arthralgia [Unknown]
  - Urinary retention [Unknown]
  - Tachycardia [Unknown]
  - Anxiety [Unknown]
  - Hypoaesthesia [Not Recovered/Not Resolved]
  - Parosmia [Unknown]
  - Incontinence [Not Recovered/Not Resolved]
  - Pruritus [Unknown]
  - Limb injury [Unknown]
  - Hallucinations, mixed [Unknown]
  - Emotional disorder [Unknown]
  - Balance disorder [Unknown]
  - Cyanosis [Unknown]
  - Disturbance in attention [Unknown]
  - Visual impairment [Unknown]
  - Blood sodium decreased [Unknown]
  - Restlessness [Unknown]
  - Heart rate increased [Unknown]
  - H1N1 influenza [Unknown]
  - Agitation [Unknown]
  - Toxicity to various agents [Unknown]
  - Drooling [Unknown]
  - Asthenia [Unknown]
  - Eye pain [Unknown]
  - Sleep disorder [Unknown]
  - Pyrexia [Unknown]
  - Feeling jittery [Unknown]
  - Gastric pH decreased [Unknown]
  - Contusion [Unknown]
  - Hyperhidrosis [Unknown]
  - Swelling face [Unknown]
  - Mood swings [Unknown]
  - Mania [Unknown]
  - Delirium [Unknown]
  - Decreased appetite [Unknown]
  - Premature labour [Unknown]
  - Menstrual disorder [Unknown]
  - Cogwheel rigidity [Unknown]
  - Eye pain [Unknown]
  - Feeling of despair [Unknown]
  - Vision blurred [Unknown]
  - Sensory loss [Unknown]
  - Schizophrenia [Unknown]
  - Tinnitus [Unknown]
  - Dyskinesia [Unknown]
  - Derealisation [Not Recovered/Not Resolved]
  - Suicidal ideation [Not Recovered/Not Resolved]
  - Depersonalisation/derealisation disorder [Not Recovered/Not Resolved]
  - Somnolence [Not Recovered/Not Resolved]
  - Dissociation [Not Recovered/Not Resolved]
  - Psychotic disorder [Recovered/Resolved]
  - Restless legs syndrome [Not Recovered/Not Resolved]
  - Nightmare [Unknown]
  - Nightmare [Unknown]
  - Diarrhoea [Unknown]
  - Confusional state [Not Recovered/Not Resolved]
  - Depression [Unknown]
  - Fatigue [Unknown]
  - Tremor [Not Recovered/Not Resolved]
  - Vomiting [Unknown]
  - Dizziness [Unknown]
  - Headache [Unknown]
  - Illness [Unknown]
  - Seizure [Not Recovered/Not Resolved]
  - Seizure [Unknown]
  - Gait disturbance [Unknown]
  - Dyspnoea [Unknown]
  - Exposure during pregnancy [Unknown]
  - Drug withdrawal syndrome [Unknown]
  - Aphasia [Not Recovered/Not Resolved]
  - Musculoskeletal stiffness [Not Recovered/Not Resolved]
  - Drug ineffective [Unknown]
  - Drug ineffective [Unknown]
  - Off label use [Unknown]

NARRATIVE: CASE EVENT DATE: 20030101
